FAERS Safety Report 17112028 (Version 2)
Quarter: 2020Q2

REPORT INFORMATION
  Report Type: Spontaneous
  Country: CO (occurrence: CO)
  Receive Date: 20191204
  Receipt Date: 20200507
  Transmission Date: 20200713
  Serious: Yes (Hospitalization, Other)
  Sender: FDA-Public Use
  Company Number: CO-ASTRAZENECA-2019SF72067

PATIENT
  Age: 44 Year
  Sex: Female

DRUGS (1)
  1. FASENRA [Suspect]
     Active Substance: BENRALIZUMAB
     Indication: ASTHMA
     Route: 058
     Dates: start: 20190617, end: 20191106

REACTIONS (2)
  - Asthmatic crisis [Unknown]
  - Treatment failure [Unknown]

NARRATIVE: CASE EVENT DATE: 20191106
